FAERS Safety Report 17541806 (Version 1)
Quarter: 2020Q1

REPORT INFORMATION
  Report Type: Spontaneous
  Country: US (occurrence: US)
  Receive Date: 20200313
  Receipt Date: 20200313
  Transmission Date: 20200409
  Serious: No
  Sender: FDA-Public Use
  Company Number: US-ALMIRALL, LLC-2019AQU000458

PATIENT

DRUGS (2)
  1. ACZONE [Suspect]
     Active Substance: DAPSONE
     Indication: ACNE
     Route: 061
  2. CLARITIN                           /00984601/ [Concomitant]
     Indication: PRODUCT USED FOR UNKNOWN INDICATION
     Dosage: UNK

REACTIONS (4)
  - Application site erythema [Recovered/Resolved]
  - Urticaria [Recovered/Resolved]
  - Feeling hot [Recovered/Resolved]
  - Pruritus [Recovered/Resolved]
